FAERS Safety Report 8504571-5 (Version None)
Quarter: 2012Q3

REPORT INFORMATION
  Report Type: 
  Country: None (occurrence: None)
  Receive Date: 20120711
  Receipt Date: 20120710
  Transmission Date: 20120928
  Serious: Yes (Other)
  Sender: FDA-Public Use
  Company Number: RU-ROCHE-1086072

PATIENT
  Age: 24 Year
  Sex: Male

DRUGS (2)
  1. PEGASYS [Suspect]
     Indication: HEPATITIS C
     Route: 058
     Dates: start: 20120120
  2. REBETOL [Suspect]
     Indication: HEPATITIS C
     Route: 048
     Dates: start: 20120120

REACTIONS (5)
  - LEUKOPENIA [None]
  - ANAEMIA [None]
  - LYMPHOCYTOSIS [None]
  - MONOCYTOSIS [None]
  - NEUTROPENIA [None]
